FAERS Safety Report 7319696-X (Version None)
Quarter: 2011Q1

REPORT INFORMATION
  Report Type: 
  Country: None (occurrence: None)
  Receive Date: 20110228
  Receipt Date: 20100804
  Transmission Date: 20110831
  Serious: No
  Sender: FDA-Public Use
  Company Number: A0874014A

PATIENT
  Age: 52 Year
  Sex: Female

DRUGS (5)
  1. LEXAPRO [Concomitant]
  2. ZYRTEC [Concomitant]
  3. LAMICTAL [Suspect]
     Indication: BIPOLAR DISORDER
     Dosage: 25MG PER DAY
     Route: 048
     Dates: start: 20100725, end: 20100803
  4. ADDERALL 10 [Concomitant]
  5. ZOCOR [Concomitant]

REACTIONS (4)
  - PAIN [None]
  - BACK PAIN [None]
  - MUSCULOSKELETAL CHEST PAIN [None]
  - ABDOMINAL PAIN [None]
